FAERS Safety Report 10024314 (Version 3)
Quarter: 2014Q3

REPORT INFORMATION
  Report Type: Spontaneous
  Country: US (occurrence: US)
  Receive Date: 20140320
  Receipt Date: 20140710
  Transmission Date: 20150326
  Serious: Yes (Other)
  Sender: FDA-Public Use
  Company Number: US-PFIZER INC-2014072975

PATIENT
  Age: 57 Year
  Sex: Female

DRUGS (2)
  1. LIPITOR [Suspect]
     Active Substance: ATORVASTATIN CALCIUM
     Indication: LOW DENSITY LIPOPROTEIN INCREASED
     Dosage: 1 DF, DAILY
     Route: 048
     Dates: start: 1997, end: 2012
  2. LIPITOR [Suspect]
     Active Substance: ATORVASTATIN CALCIUM
     Indication: CARDIOVASCULAR EVENT PROPHYLAXIS

REACTIONS (5)
  - Cardiac disorder [Not Recovered/Not Resolved]
  - Type 2 diabetes mellitus [Not Recovered/Not Resolved]
  - Cerebrovascular accident [Not Recovered/Not Resolved]
  - Hemiplegia [Not Recovered/Not Resolved]
  - Blindness unilateral [Not Recovered/Not Resolved]

NARRATIVE: CASE EVENT DATE: 1999
